FAERS Safety Report 8349594-4 (Version None)
Quarter: 2012Q2

REPORT INFORMATION
  Report Type: 
  Country: None (occurrence: None)
  Receive Date: 20120510
  Receipt Date: 20120506
  Transmission Date: 20120825
  Serious: No
  Sender: FDA-Public Use
  Company Number: PHHY2012SA038634

PATIENT
  Age: 71 Year
  Sex: Male

DRUGS (7)
  1. NILOTINIB [Suspect]
     Dosage: 400 MG, BID
     Route: 048
     Dates: start: 20120101, end: 20120101
  2. TAMSULOSIN HYDROCHLORIDE [Concomitant]
  3. INDAPAMIDE [Concomitant]
  4. LIPITOR [Concomitant]
  5. BISOPROLOL FUMARATE [Concomitant]
  6. PROSCAR [Concomitant]
  7. ASPIRIN [Concomitant]

REACTIONS (3)
  - URTICARIA [None]
  - CONDITION AGGRAVATED [None]
  - PRURITUS [None]
